FAERS Safety Report 13221175 (Version 2)
Quarter: 2017Q1

REPORT INFORMATION
  Report Type: Other
  Country: US (occurrence: US)
  Receive Date: 20170211
  Receipt Date: 20170323
  Transmission Date: 20170428
  Serious: Yes (Other)
  Sender: FDA-Public Use
  Company Number: US-ACORDA-ACO_130473_2016

PATIENT
  Sex: Female

DRUGS (1)
  1. AMPYRA [Suspect]
     Active Substance: DALFAMPRIDINE
     Indication: BALANCE DISORDER
     Dosage: 10 MG, Q 12 HRS
     Route: 048
     Dates: start: 20161021, end: 2016

REACTIONS (2)
  - Off label use [Unknown]
  - Abasia [Recovered/Resolved]
